FAERS Safety Report 7812037-0 (Version None)
Quarter: 2011Q4

REPORT INFORMATION
  Report Type: 
  Country: None (occurrence: None)
  Receive Date: 20111013
  Receipt Date: 20110929
  Transmission Date: 20120403
  Serious: Yes (Other)
  Sender: FDA-Public Use
  Company Number: BR-ROCHE-787960

PATIENT
  Sex: Female
  Weight: 76 kg

DRUGS (11)
  1. CLONAZEPAM [Suspect]
     Indication: SLEEP DISORDER THERAPY
     Dosage: FREQUENCY: 0.5MG/TABLET
     Route: 065
  2. CLONAZEPAM [Suspect]
     Dosage: FREQUENCY: 1MG/TABLET
     Route: 065
  3. LOSARTAN POTASSIUM [Concomitant]
     Indication: CARDIOVASCULAR DISORDER
  4. ATENOLOL [Concomitant]
     Indication: BLOOD PRESSURE ABNORMAL
  5. SIMVASTATIN [Concomitant]
     Indication: BLOOD CHOLESTEROL ABNORMAL
  6. CLONAZEPAM [Suspect]
     Route: 065
  7. CLONAZEPAM [Suspect]
     Dosage: FREQUENCY: 2MG/TABLET
     Route: 065
  8. FLUOXETINE HCL [Concomitant]
     Indication: DEPRESSION
  9. METFORMIN HYDROCHLORIDE [Concomitant]
     Indication: DIABETES MELLITUS
  10. AZUKON [Concomitant]
     Indication: RENAL DISORDER
  11. HYDROCHLOROTHIAZIDE [Concomitant]
     Indication: RENAL IMPAIRMENT

REACTIONS (3)
  - NERVOUS SYSTEM DISORDER [None]
  - WITHDRAWAL SYNDROME [None]
  - CARDIAC DISORDER [None]
